FAERS Safety Report 14942795 (Version 4)
Quarter: 2018Q3

REPORT INFORMATION
  Report Type: Spontaneous
  Country: ES (occurrence: ES)
  Receive Date: 20180528
  Receipt Date: 20180905
  Transmission Date: 20181010
  Serious: Yes (Death, Hospitalization, Other)
  Sender: FDA-Public Use
  Company Number: ES-SUN PHARMACEUTICAL INDUSTRIES LTD-2018RR-173838

PATIENT
  Age: 62 Year
  Sex: Male

DRUGS (10)
  1. VALPROIC ACID 500 MG [Concomitant]
     Active Substance: VALPROIC ACID
     Indication: EPILEPSY
     Dosage: 500 MG, TID (1?1?1?0) CHRONIC
     Route: 065
  2. QUETIAPINE 400 MG [Concomitant]
     Active Substance: QUETIAPINE
     Indication: SCHIZOPHRENIA
     Dosage: 400 MG, TID (1?1?1?0) CHRONIC
     Route: 065
  3. VALPROIC ACID 500 MG [Concomitant]
     Active Substance: VALPROIC ACID
     Indication: MANIA
  4. LORATADINE. [Suspect]
     Active Substance: LORATADINE
     Indication: RHINITIS ALLERGIC
     Dosage: 10 MG, QD
     Route: 065
  5. CLONAZEPAM 0.5 MG [Concomitant]
     Active Substance: CLONAZEPAM
     Indication: EPILEPSY
     Dosage: 2 MG, DAILY (1?1?1?1) CHRONIC
     Route: 065
  6. FLUTICASONE / SALMETEROL 250/25 MCG [Concomitant]
     Indication: ASTHMA
     Dosage: 2 INH X 2 TIMES A DAY (1?0?1?0)
     Route: 065
  7. LEVOTHYROXINE 50 MCG [Concomitant]
     Active Substance: LEVOTHYROXINE
     Indication: HYPOTHYROIDISM
     Dosage: 150 ?G, DAILY, (3?0?0?0) CHRONIC
     Route: 065
  8. TIOTROPIUM 2.5 MCG / PUFF [Concomitant]
     Indication: CHRONIC OBSTRUCTIVE PULMONARY DISEASE
     Dosage: 2 PUFFS (1?0?0?0)
     Route: 065
  9. HALOPERIDOL 5 MG [Concomitant]
     Indication: NEUROLEPTIC MALIGNANT SYNDROME
     Dosage: 15 MG, TID (1?1?1?0) CHRONIC
     Route: 065
  10. METFORMIN [Concomitant]
     Active Substance: METFORMIN HYDROCHLORIDE
     Indication: TYPE 2 DIABETES MELLITUS
     Dosage: 850 MG, BID (0?1?1?0) CHRONIC
     Route: 065

REACTIONS (3)
  - Loss of consciousness [Not Recovered/Not Resolved]
  - Coma [Not Recovered/Not Resolved]
  - Drug interaction [Fatal]
